FAERS Safety Report 18972941 (Version 1)
Quarter: 2021Q1

REPORT INFORMATION
  Report Type: Spontaneous
  Country: IN (occurrence: IN)
  Receive Date: 20210305
  Receipt Date: 20210305
  Transmission Date: 20210420
  Serious: Yes (Hospitalization, Other)
  Sender: FDA-Public Use
  Company Number: IN-SA-2021SA066732

PATIENT
  Age: 29 Year
  Sex: Female

DRUGS (5)
  1. METHYLPREDNISOLONE. [Concomitant]
     Active Substance: METHYLPREDNISOLONE
     Indication: ATYPICAL HAEMOLYTIC URAEMIC SYNDROME
     Dosage: 1 G, QD, ON DAY 5 OF HOSPITALIZATION
     Route: 042
  2. AMLODIPINE [Interacting]
     Active Substance: AMLODIPINE BESYLATE
     Indication: PYREXIA
  3. CYCLOPHOSPHAMIDE. [Concomitant]
     Active Substance: CYCLOPHOSPHAMIDE
     Indication: ATYPICAL HAEMOLYTIC URAEMIC SYNDROME
     Dosage: 510 MG (INCITED AT A PORTION OF 510 MG IN VIEW OF RENAL DISPLACEMENT AND PLASMAPHERESIS) ON DAY 9 OF
  4. RIFAMPICIN [Suspect]
     Active Substance: RIFAMPIN
     Indication: PYREXIA
  5. METHYLPREDNISOLONE. [Concomitant]
     Active Substance: METHYLPREDNISOLONE
     Dosage: 24 MG, BID

REACTIONS (2)
  - Drug interaction [Unknown]
  - Posterior reversible encephalopathy syndrome [Unknown]
